FAERS Safety Report 19827913 (Version 8)
Quarter: 2022Q3

REPORT INFORMATION
  Report Type: Report from Study
  Country: US (occurrence: US)
  Receive Date: 20210914
  Receipt Date: 20220725
  Transmission Date: 20221026
  Serious: No
  Sender: FDA-Public Use
  Company Number: US-NOVARTISTESTPH-NVSC2021US207504

PATIENT
  Age: 72 Year
  Sex: Male

DRUGS (5)
  1. ENTRESTO [Suspect]
     Active Substance: SACUBITRIL\VALSARTAN
     Indication: Cardiac failure
     Dosage: 0.5 DF, QD(24.26MG)
     Route: 048
     Dates: start: 20210729
  2. ENTRESTO [Suspect]
     Active Substance: SACUBITRIL\VALSARTAN
     Dosage: 0.5 DOSAGE FORM, BID (24/26 MG)
     Route: 048
     Dates: start: 20210726
  3. ENTRESTO [Suspect]
     Active Substance: SACUBITRIL\VALSARTAN
     Dosage: 0.5 DOSAGE FORM, BID (24/26 MG, HALF 2 X DAILY)
     Route: 048
  4. ENTRESTO [Suspect]
     Active Substance: SACUBITRIL\VALSARTAN
     Dosage: 50 MG, BID (24/26MG)
     Route: 048
     Dates: start: 20210726
  5. ENTRESTO [Suspect]
     Active Substance: SACUBITRIL\VALSARTAN
     Dosage: 24.26 MG, BID (0.5 IN THE MORNING AND 1 FULL TAB IN THE EVENING)
     Route: 048
     Dates: start: 20210726

REACTIONS (6)
  - Memory impairment [Unknown]
  - Hypotension [Unknown]
  - Dizziness [Unknown]
  - Prescribed underdose [Unknown]
  - Wrong technique in product usage process [Unknown]
  - Inappropriate schedule of product administration [Unknown]

NARRATIVE: CASE EVENT DATE: 20210701
